FAERS Safety Report 7620773-4 (Version None)
Quarter: 2011Q3

REPORT INFORMATION
  Report Type: 
  Country: None (occurrence: None)
  Receive Date: 20110719
  Receipt Date: 20110718
  Transmission Date: 20111222
  Serious: No
  Sender: FDA-Public Use
  Company Number: JP-SANTEN INC.-INC-11-000006

PATIENT
  Sex: Female

DRUGS (3)
  1. FLUOROMETHOLONE [Suspect]
     Route: 031
     Dates: start: 20110621, end: 20110621
  2. GATIFLOXACIN HYDRATE [Concomitant]
     Dates: start: 20081001
  3. LEVOFLOXACIN [Suspect]
     Route: 031
     Dates: start: 20110621, end: 20110621

REACTIONS (2)
  - ECZEMA [None]
  - ANAPHYLACTIC SHOCK [None]
